FAERS Safety Report 5984148-6 (Version None)
Quarter: 2008Q4

REPORT INFORMATION
  Report Type: 
  Country: None (occurrence: None)
  Receive Date: 20081208
  Receipt Date: 20080311
  Transmission Date: 20090506
  Serious: No
  Sender: FDA-Public Use
  Company Number: US-AMGEN-KDL266238

PATIENT
  Sex: Male
  Weight: 124.9 kg

DRUGS (6)
  1. ENBREL [Suspect]
     Indication: PSORIASIS
     Route: 058
     Dates: start: 20070901
  2. ADVAIR HFA [Concomitant]
     Dates: start: 20050101
  3. ALBUTEROL [Concomitant]
     Dates: start: 20050101
  4. NORVASC [Concomitant]
     Dates: start: 20050101
  5. ACIPHEX [Concomitant]
     Dates: start: 20070101
  6. ZYRTEC [Concomitant]
     Dates: start: 20050101

REACTIONS (1)
  - PNEUMONIA [None]
